FAERS Safety Report 12685068 (Version 2)
Quarter: 2016Q3

REPORT INFORMATION
  Report Type: Spontaneous
  Country: US (occurrence: US)
  Receive Date: 20160825
  Receipt Date: 20160926
  Transmission Date: 20161109
  Serious: Yes (Hospitalization, Other)
  Sender: FDA-Public Use
  Company Number: US-INDIVIOR LIMITED-INDV-093866-2016

PATIENT
  Sex: Male

DRUGS (13)
  1. XANAX [Concomitant]
     Active Substance: ALPRAZOLAM
     Indication: ANXIETY
     Dosage: UNK, AS NEEDED
     Route: 048
  2. SUBOXONE [Suspect]
     Active Substance: BUPRENORPHINE HYDROCHLORIDE\NALOXONE HYDROCHLORIDE
     Dosage: SOMETIMES TAKES LESS THAN PRESCRIBED
     Route: 060
  3. SUBOXONE [Suspect]
     Active Substance: BUPRENORPHINE HYDROCHLORIDE\NALOXONE HYDROCHLORIDE
     Dosage: 16 MG, DAILY
     Route: 060
     Dates: start: 2012
  4. BUPRENORPHINE/NALOXONE GENERIC [Suspect]
     Active Substance: BUPRENORPHINE\NALOXONE
     Indication: PAIN
     Dosage: 16 MG, DAILY
     Route: 060
     Dates: end: 20160814
  5. LITHIUM. [Suspect]
     Active Substance: LITHIUM
     Indication: PRODUCT USED FOR UNKNOWN INDICATION
     Dosage: UNKNOWN
     Route: 048
  6. SUBOXONE [Suspect]
     Active Substance: BUPRENORPHINE HYDROCHLORIDE\NALOXONE HYDROCHLORIDE
     Indication: PAIN
     Dosage: 16 MG, DAILY, FOR ABOUT 6 YEARS
     Route: 060
     Dates: start: 2006, end: 2012
  7. BUPROPION. [Suspect]
     Active Substance: BUPROPION
     Indication: DEPRESSION
     Dosage: 300 MG, DAILY FOR 2 WEEKS
     Route: 048
     Dates: start: 201608
  8. XANAX [Concomitant]
     Active Substance: ALPRAZOLAM
     Dosage: 8 MG, DAILY
     Route: 048
  9. SUBOXONE [Suspect]
     Active Substance: BUPRENORPHINE HYDROCHLORIDE\NALOXONE HYDROCHLORIDE
     Indication: PAIN
     Dosage: UNK
     Route: 065
  10. SUBOXONE [Suspect]
     Active Substance: BUPRENORPHINE HYDROCHLORIDE\NALOXONE HYDROCHLORIDE
     Dosage: 16 MG, DAILY
     Route: 060
  11. SUBOXONE [Suspect]
     Active Substance: BUPRENORPHINE HYDROCHLORIDE\NALOXONE HYDROCHLORIDE
     Indication: PAIN
     Dosage: 16 MG, DAILY
     Route: 060
  12. SUBOXONE [Suspect]
     Active Substance: BUPRENORPHINE HYDROCHLORIDE\NALOXONE HYDROCHLORIDE
     Dosage: SOME TIMES TOOK LESS THAN THE PRESCRIBED
     Route: 065
  13. BUPROPION. [Suspect]
     Active Substance: BUPROPION
     Dosage: TOOK MORE THAN PRESCRIBED  DOSE OF 300 MG
     Route: 048
     Dates: start: 201608, end: 201608

REACTIONS (9)
  - Overdose [Recovered/Resolved]
  - Back disorder [Recovered/Resolved]
  - Intentional underdose [Recovered/Resolved]
  - Hallucination, auditory [Recovered/Resolved]
  - Feeling abnormal [Recovered/Resolved]
  - Therapy cessation [Recovered/Resolved]
  - Hallucination, visual [Recovered/Resolved]
  - Off label use [Not Recovered/Not Resolved]
  - Loss of consciousness [Recovered/Resolved]

NARRATIVE: CASE EVENT DATE: 2006
